FAERS Safety Report 16914741 (Version 3)
Quarter: 2019Q4

REPORT INFORMATION
  Report Type: Spontaneous
  Country: US (occurrence: US)
  Receive Date: 20191014
  Receipt Date: 20191108
  Transmission Date: 20200122
  Serious: Yes (Other)
  Sender: FDA-Public Use
  Company Number: US-COOPERSURGICAL, INC.-US-2019CPS003081

PATIENT
  Age: 31 Year
  Sex: Female
  Weight: 74.83 kg

DRUGS (1)
  1. PARAGARD T 380A [Suspect]
     Active Substance: COPPER
     Indication: CONTRACEPTION
     Dosage: UNK
     Route: 015
     Dates: start: 20090619

REACTIONS (14)
  - Endometritis [Unknown]
  - Embedded device [Not Recovered/Not Resolved]
  - Complication of device removal [Not Recovered/Not Resolved]
  - Foreign body in reproductive tract [Not Recovered/Not Resolved]
  - Metaplasia [Unknown]
  - Off label use [Unknown]
  - Device material issue [Not Recovered/Not Resolved]
  - Vulvovaginal swelling [Recovered/Resolved]
  - Device breakage [Not Recovered/Not Resolved]
  - Actinomyces test positive [Unknown]
  - Abdominal distension [Recovered/Resolved]
  - Dysmenorrhoea [Recovered/Resolved]
  - Pelvic pain [Recovered/Resolved]
  - Intentional device use issue [Recovered/Resolved]

NARRATIVE: CASE EVENT DATE: 20090619
